FAERS Safety Report 5079940-9 (Version None)
Quarter: 2006Q3

REPORT INFORMATION
  Report Type: 
  Country: None (occurrence: None)
  Receive Date: 20060720
  Receipt Date: 20050726
  Transmission Date: 20061208
  Serious: Yes (Hospitalization, Other)
  Sender: FDA-Public Use
  Company Number: 2005100373

PATIENT
  Age: 66 Year
  Sex: Female

DRUGS (6)
  1. CELEBREX [Suspect]
     Indication: COMPLEX REGIONAL PAIN SYNDROME
  2. CELEXA [Suspect]
     Indication: INSOMNIA
     Dates: start: 20030619
  3. VIOXX [Suspect]
     Indication: ILL-DEFINED DISORDER
  4. ACETYLSALICYLIC ACID (ACETYLSALICYCLIC ACID) [Concomitant]
  5. VITAMINS (VITAMINS) [Concomitant]
  6. CALCIUM (CALCIUM) [Concomitant]

REACTIONS (4)
  - DEEP VEIN THROMBOSIS [None]
  - HEAD INJURY [None]
  - MYOCARDIAL INFARCTION [None]
  - PALLOR [None]
